FAERS Safety Report 14557073 (Version 1)
Quarter: 2018Q1

REPORT INFORMATION
  Report Type: Spontaneous
  Country: TW (occurrence: TW)
  Receive Date: 20180221
  Receipt Date: 20180221
  Transmission Date: 20180509
  Serious: Yes (Other)
  Sender: FDA-Public Use
  Company Number: TW-009507513-1802TWN008232

PATIENT
  Age: 38 Year
  Sex: Female

DRUGS (1)
  1. KEYTRUDA [Suspect]
     Active Substance: PEMBROLIZUMAB
     Indication: ACUTE MYELOID LEUKAEMIA RECURRENT
     Dosage: 1 MG/KG, SINGLE DOSE

REACTIONS (5)
  - Corneal erosion [Recovering/Resolving]
  - Persistent corneal epithelial defect [Recovering/Resolving]
  - Off label use [Unknown]
  - Graft versus host disease [Unknown]
  - Graft versus host disease in eye [Recovered/Resolved]
